FAERS Safety Report 10462305 (Version 2)
Quarter: 2014Q3

REPORT INFORMATION
  Report Type: Report from Study
  Country: US (occurrence: US)
  Receive Date: 20140918
  Receipt Date: 20140924
  Transmission Date: 20150326
  Serious: Yes (Life-Threatening, Hospitalization)
  Sender: FDA-Public Use
  Company Number: US-BRISTOL-MYERS SQUIBB COMPANY-21398961

PATIENT
  Age: 22 Year
  Sex: Male
  Weight: 70.4 kg

DRUGS (1)
  1. IPILIMUMAB [Suspect]
     Active Substance: IPILIMUMAB
     Indication: HODGKIN^S DISEASE
     Dosage: LAST DOSE ON 02SEP2014?10 MG/KG IV OVER 90 MIN ON DAY1?TOTAL DOSE: 730MG?MAINTAIN: Q 12 WEEKS
     Route: 042
     Dates: start: 20131230

REACTIONS (1)
  - Pneumonia [Not Recovered/Not Resolved]

NARRATIVE: CASE EVENT DATE: 20140905
